FAERS Safety Report 5485062-5 (Version None)
Quarter: 2007Q4

REPORT INFORMATION
  Report Type: 
  Country: None (occurrence: None)
  Receive Date: 20071009
  Receipt Date: 20071009
  Transmission Date: 20080405
  Serious: No
  Sender: FDA-Public Use
  Company Number: None

PATIENT

DRUGS (1)
  1. T.B. TESTING [Suspect]

REACTIONS (10)
  - DYSPNOEA [None]
  - EMOTIONAL DISTRESS [None]
  - FATIGUE [None]
  - FEELING COLD [None]
  - HEADACHE [None]
  - HOT FLUSH [None]
  - INAPPROPRIATE SCHEDULE OF DRUG ADMINISTRATION [None]
  - MUSCLE SPASMS [None]
  - PAIN [None]
  - PYREXIA [None]
